FAERS Safety Report 23951038 (Version 1)
Quarter: 2024Q2

REPORT INFORMATION
  Report Type: Report from Study
  Country: US (occurrence: US)
  Receive Date: 20240607
  Receipt Date: 20240607
  Transmission Date: 20240716
  Serious: Yes (Hospitalization, Other)
  Sender: FDA-Public Use
  Company Number: US-ARGENX-2024-ARGX-US004011

PATIENT

DRUGS (1)
  1. VYVGART [Suspect]
     Active Substance: EFGARTIGIMOD ALFA-FCAB
     Indication: Myasthenia gravis
     Dosage: 800 MG,ONCE WEEKLY FOR 4 WEEKS. THEN OFF FOR 4 WEEKS
     Route: 042
     Dates: start: 20231009

REACTIONS (4)
  - Myasthenia gravis [Not Recovered/Not Resolved]
  - Therapy interrupted [Unknown]
  - Depression [Unknown]
  - Fall [Unknown]

NARRATIVE: CASE EVENT DATE: 20240301
